FAERS Safety Report 11888424 (Version 3)
Quarter: 2016Q1

REPORT INFORMATION
  Report Type: Report from Study
  Country: DE (occurrence: DE)
  Receive Date: 20160105
  Receipt Date: 20160115
  Transmission Date: 20160526
  Serious: Yes (Death, Life-Threatening, Hospitalization, Other)
  Sender: FDA-Public Use
  Company Number: PHHY2015DE172210

PATIENT
  Sex: Female

DRUGS (6)
  1. EXEMESTANE. [Concomitant]
     Active Substance: EXEMESTANE
     Indication: BREAST CANCER METASTATIC
     Dosage: 25 MG, QD
     Route: 048
     Dates: start: 20151019
  2. TILIDIN [Concomitant]
     Active Substance: NALOXONE HYDROCHLORIDE\TILIDINE HYDROCHLORIDE
     Indication: PAIN
     Dosage: 3-0-2 DAILY, QD
     Route: 065
     Dates: start: 20151002
  3. ZOLPIDEM [Concomitant]
     Active Substance: ZOLPIDEM\ZOLPIDEM TARTRATE
     Indication: SLEEP DISORDER
     Dosage: 5 MG, PRN (AS NEEDED)
     Route: 065
  4. AFINITOR [Suspect]
     Active Substance: EVEROLIMUS
     Indication: BREAST CANCER METASTATIC
     Dosage: 5 MG, QD
     Route: 048
     Dates: start: 20151019
  5. CITALOPRAM [Concomitant]
     Active Substance: CITALOPRAM HYDROBROMIDE
     Indication: DEPRESSION
     Dosage: 40 MG, QD
     Route: 065
     Dates: start: 2008
  6. CLOMIPRAMINE [Concomitant]
     Active Substance: CLOMIPRAMINE
     Indication: DEPRESSION
     Dosage: 25 MG, PRN (AS NEEDED)
     Route: 065
     Dates: start: 2013

REACTIONS (13)
  - Accident [Fatal]
  - Upper limb fracture [Fatal]
  - General physical health deterioration [Fatal]
  - Head injury [Fatal]
  - Facial bones fracture [Fatal]
  - Cervical vertebral fracture [Fatal]
  - Multiple injuries [Fatal]
  - Spinal shock [Fatal]
  - Spinal column injury [Fatal]
  - Rib fracture [Fatal]
  - Haemorrhage [Fatal]
  - Craniocerebral injury [Fatal]
  - Pelvic fracture [Fatal]

NARRATIVE: CASE EVENT DATE: 20151112
